FAERS Safety Report 6356728-X (Version None)
Quarter: 2009Q3

REPORT INFORMATION
  Report Type: 
  Country: None (occurrence: None)
  Receive Date: 20090915
  Receipt Date: 20090901
  Transmission Date: 20100115
  Serious: Yes (Hospitalization)
  Sender: FDA-Public Use
  Company Number: DE-GENENTECH-289960

PATIENT
  Sex: Female

DRUGS (3)
  1. BEVACIZUMAB [Suspect]
     Indication: BREAST CANCER
     Dosage: 1350 MG, Q21D
     Route: 042
     Dates: start: 20090804
  2. EPIRUBICIN [Suspect]
     Indication: BREAST CANCER
     Dosage: 180 MG, Q21D
     Route: 042
     Dates: start: 20090804
  3. CYCLOPHOSPHAMIDE [Suspect]
     Indication: BREAST CANCER
     Dosage: 1200 MG, Q21D
     Route: 042
     Dates: start: 20090804

REACTIONS (1)
  - MIGRAINE [None]
